FAERS Safety Report 24086162 (Version 5)
Quarter: 2024Q3

REPORT INFORMATION
  Report Type: Report from Study
  Country: US (occurrence: US)
  Receive Date: 20240712
  Receipt Date: 20240816
  Transmission Date: 20241016
  Serious: Yes (Other)
  Sender: JAZZ
  Company Number: US-JAZZ PHARMACEUTICALS-2024-US-010366

PATIENT
  Age: 69 Year
  Sex: Female

DRUGS (7)
  1. XYWAV [Suspect]
     Active Substance: CALCIUM OXYBATE\MAGNESIUM OXYBATE\POTASSIUM OXYBATE\SODIUM OXYBATE
     Indication: Hypersomnia
     Dosage: 1.5 GRAM, QD
  2. XYWAV [Suspect]
     Active Substance: CALCIUM OXYBATE\MAGNESIUM OXYBATE\POTASSIUM OXYBATE\SODIUM OXYBATE
     Dosage: UNK
  3. XYWAV [Suspect]
     Active Substance: CALCIUM OXYBATE\MAGNESIUM OXYBATE\POTASSIUM OXYBATE\SODIUM OXYBATE
     Dosage: UNK
  4. XYWAV [Suspect]
     Active Substance: CALCIUM OXYBATE\MAGNESIUM OXYBATE\POTASSIUM OXYBATE\SODIUM OXYBATE
     Dosage: 2.25 GRAM, ONCE, NIGHTLY
  5. XYWAV [Suspect]
     Active Substance: CALCIUM OXYBATE\MAGNESIUM OXYBATE\POTASSIUM OXYBATE\SODIUM OXYBATE
     Dosage: 2.25 GRAM, QD
     Route: 048
     Dates: start: 20240622
  6. XYWAV [Suspect]
     Active Substance: CALCIUM OXYBATE\MAGNESIUM OXYBATE\POTASSIUM OXYBATE\SODIUM OXYBATE
     Dosage: 1.5 GRAM, QD
     Route: 048
     Dates: start: 20240621, end: 20240722
  7. WIXELA INHUB [Concomitant]
     Active Substance: FLUTICASONE PROPIONATE\SALMETEROL XINAFOATE
     Indication: Product used for unknown indication
     Dosage: UNK
     Dates: start: 20240701

REACTIONS (12)
  - Surgery [Unknown]
  - Arthralgia [Unknown]
  - Burning sensation [Unknown]
  - Disturbance in attention [Unknown]
  - Photophobia [Unknown]
  - Blepharospasm [Unknown]
  - Aphasia [Recovering/Resolving]
  - Confusional state [Recovering/Resolving]
  - Feeling abnormal [Recovering/Resolving]
  - Mental disorder [Recovering/Resolving]
  - Amnesia [Unknown]
  - Depression [Unknown]

NARRATIVE: CASE EVENT DATE: 20240601
